FAERS Safety Report 21298539 (Version 1)
Quarter: 2022Q3

REPORT INFORMATION
  Report Type: Spontaneous
  Country: IN (occurrence: IN)
  Receive Date: 20220906
  Receipt Date: 20220906
  Transmission Date: 20221027
  Serious: Yes (Other)
  Sender: FDA-Public Use
  Company Number: IN-PFIZER INC-2020089605

PATIENT
  Age: 62 Year
  Sex: Male

DRUGS (15)
  1. SUTENT [Suspect]
     Active Substance: SUNITINIB MALATE
     Indication: Metastatic renal cell carcinoma
     Dosage: 50 MG, 1X/DAY
     Route: 048
     Dates: start: 20190813
  2. SUTENT [Suspect]
     Active Substance: SUNITINIB MALATE
     Indication: Papillary renal cell carcinoma
     Dosage: 37.5 MG, 1X/DAY
     Dates: start: 20200221
  3. SUTENT [Suspect]
     Active Substance: SUNITINIB MALATE
     Dosage: 50 MG, 1X/DAY
     Route: 048
     Dates: start: 20200928
  4. SUTENT [Suspect]
     Active Substance: SUNITINIB MALATE
     Dosage: 37.5 MG, 1X/DAY
     Route: 048
     Dates: start: 202201
  5. XGEVA [Concomitant]
     Active Substance: DENOSUMAB
     Dosage: UNK
  6. ONDANSETRON HYDROCHLORIDE [Concomitant]
     Active Substance: ONDANSETRON HYDROCHLORIDE
     Indication: Nausea
     Dosage: 8 MG, AS NEEDED (BEFORE FOOD X3 DAYS)
  7. ONDANSETRON HYDROCHLORIDE [Concomitant]
     Active Substance: ONDANSETRON HYDROCHLORIDE
     Indication: Vomiting
  8. PAN [Concomitant]
     Dosage: 40 MG (BEFORE FOOD)
  9. MINERALS\VITAMINS [Concomitant]
     Active Substance: MINERALS\VITAMINS
     Dosage: UNK (AFTER FOOD)
  10. ACETAMINOPHEN [Concomitant]
     Active Substance: ACETAMINOPHEN
     Indication: Pain
     Dosage: 650 MG, AS NEEDED
  11. ACETAMINOPHEN [Concomitant]
     Active Substance: ACETAMINOPHEN
     Indication: Pyrexia
  12. REDOTIL [Concomitant]
     Indication: Diarrhoea
     Dosage: 100 MG, AS NEEDED
  13. DUPHALAC [Concomitant]
     Active Substance: LACTULOSE
     Indication: Constipation
     Dosage: 10 ML, AS NEEDED (THREE TIMES A DAY )
  14. MUCAINE [ALUMINIUM HYDROXIDE;MAGNESIUM CARBONATE;OXETACAINE] [Concomitant]
     Dosage: 10 ML THRICE A DAY X1WEEK
  15. CALCIUM\CHOLECALCIFEROL [Concomitant]
     Active Substance: CALCIUM\CHOLECALCIFEROL
     Dosage: 500 MG

REACTIONS (2)
  - Gallbladder operation [Unknown]
  - Prostatic operation [Unknown]
